FAERS Safety Report 4431655-3 (Version None)
Quarter: 2004Q3

REPORT INFORMATION
  Report Type: 
  Country: None (occurrence: None)
  Receive Date: 20040721
  Receipt Date: 20040218
  Transmission Date: 20050211
  Serious: Yes (Hospitalization)
  Sender: FDA-Public Use
  Company Number: OMPQ-PR-0402S-0133

PATIENT
  Age: 26 Year
  Sex: Male

DRUGS (1)
  1. OMNIPAQUE 180 [Suspect]
     Dosage: SINGLE DOSE, I.T.
     Route: 037
     Dates: start: 20040203, end: 20040203

REACTIONS (1)
  - MENINGITIS [None]
